FAERS Safety Report 5571519-5 (Version None)
Quarter: 2007Q4

REPORT INFORMATION
  Report Type: 
  Country: None (occurrence: None)
  Receive Date: 20071221
  Receipt Date: 20071211
  Transmission Date: 20080405
  Serious: Yes (Life-Threatening, Hospitalization, Other)
  Sender: FDA-Public Use
  Company Number: US-JNJFOC-20071201206

PATIENT
  Sex: Female
  Weight: 86.18 kg

DRUGS (3)
  1. SPORANOX [Suspect]
     Indication: ONYCHOMYCOSIS
     Route: 065
  2. COZAAR [Concomitant]
     Indication: HYPERTENSION
     Route: 065
  3. HTCZ [Concomitant]
     Indication: HYPERTENSION
     Route: 065

REACTIONS (2)
  - PARANOIA [None]
  - STEVENS-JOHNSON SYNDROME [None]
